FAERS Safety Report 6247920-3 (Version None)
Quarter: 2009Q2

REPORT INFORMATION
  Report Type: 
  Country: None (occurrence: None)
  Receive Date: 20090626
  Receipt Date: 20090615
  Transmission Date: 20091009
  Serious: Yes (Other)
  Sender: FDA-Public Use
  Company Number: PHHY2009DE19745

PATIENT
  Sex: Female

DRUGS (2)
  1. ZOMETA [Suspect]
     Indication: OSTEOLYSIS
     Dosage: UNK
     Route: 042
     Dates: start: 20080526, end: 20090101
  2. CHEMOTHERAPEUTICS NOS [Concomitant]

REACTIONS (1)
  - OSTEONECROSIS [None]
